FAERS Safety Report 4703242-0 (Version None)
Quarter: 2005Q2

REPORT INFORMATION
  Report Type: 
  Country: None (occurrence: None)
  Receive Date: 20050629
  Receipt Date: 20040921
  Transmission Date: 20051028
  Serious: Yes (Other)
  Sender: FDA-Public Use
  Company Number: 200412987JP

PATIENT
  Age: 13 Year
  Sex: Female
  Weight: 57.4 kg

DRUGS (3)
  1. LANTUS [Suspect]
     Indication: DIABETES MELLITUS INSULIN-DEPENDENT
     Dosage: DOSE UNIT: UNITS
     Route: 058
     Dates: start: 20040318, end: 20041117
  2. OPTIPEN (INSULIN PUMP) [Suspect]
  3. PENFILL R [Concomitant]
     Dosage: DOSE: 20-18-20; FREQUENCY: BEFORE MEALS; DOSE UNIT: UNITS
     Route: 058
     Dates: start: 19971110

REACTIONS (1)
  - DUODENAL ULCER [None]
